FAERS Safety Report 20830816 (Version 1)
Quarter: 2022Q2

REPORT INFORMATION
  Report Type: Spontaneous
  Country: GB (occurrence: GB)
  Receive Date: 20220515
  Receipt Date: 20220515
  Transmission Date: 20220720
  Serious: Yes (Other)
  Sender: FDA-Public Use
  Company Number: GB-MHRA-MED-202205070949321780-MY2DJ

PATIENT
  Age: 35 Year
  Sex: Female

DRUGS (1)
  1. FEXOFENADINE [Suspect]
     Active Substance: FEXOFENADINE HYDROCHLORIDE
     Indication: Urticaria chronic
     Dates: start: 20220426, end: 20220426

REACTIONS (11)
  - Eye pain [Not Recovered/Not Resolved]
  - Vision blurred [Recovered/Resolved]
  - Tinnitus [Recovering/Resolving]
  - Pyrexia [Recovered/Resolved]
  - Ear pain [Recovering/Resolving]
  - Chest pain [Recovering/Resolving]
  - Headache [Not Recovered/Not Resolved]
  - Diarrhoea [Recovered/Resolved]
  - Angioedema [Recovered/Resolved]
  - Insomnia [Recovering/Resolving]
  - Medication error [Unknown]

NARRATIVE: CASE EVENT DATE: 20220426
